FAERS Safety Report 16714204 (Version 15)
Quarter: 2020Q3

REPORT INFORMATION
  Report Type: Report from Study
  Country: CN (occurrence: CN)
  Receive Date: 20190819
  Receipt Date: 20200909
  Transmission Date: 20201102
  Serious: Yes (Hospitalization)
  Sender: FDA-Public Use
  Company Number: CN-ROCHE-2372587

PATIENT
  Age: 33 Year
  Sex: Male
  Weight: 63 kg

DRUGS (44)
  1. ATEZOLIZUMAB. [Suspect]
     Active Substance: ATEZOLIZUMAB
     Indication: HEPATOCELLULAR CARCINOMA
     Dosage: ON DAY 1 OF EACH 21 DAY CYCLE?DATE OF MOST RECENT DOSE OF ATEZOLIZUMAB (1200 MG) PRIOR TO EVENT ONSE
     Route: 042
     Dates: start: 20190308
  2. ENTECAVIR. [Concomitant]
     Active Substance: ENTECAVIR
     Indication: HEPATITIS B
     Dates: start: 201803, end: 20191015
  3. MAGNESIUM ISOGLYCYRRHIZINATE [Concomitant]
     Active Substance: MAGNESIUM ISOGLYCYRRHIZINATE
     Indication: HEPATITIS VIRAL
     Dates: start: 20190805, end: 20190812
  4. POLYENE PHOSPHATIDYLCHOLINE [Concomitant]
     Active Substance: PHOSPHOLIPID
     Indication: HEPATIC CIRRHOSIS
     Dates: start: 20190805, end: 20190812
  5. OXYCODONE HYDROCHLORIDE. [Concomitant]
     Active Substance: OXYCODONE HYDROCHLORIDE
     Indication: PAIN
     Dates: start: 20191009, end: 20191011
  6. OMEPRAZOLE MAGNESIUM. [Concomitant]
     Active Substance: OMEPRAZOLE MAGNESIUM
     Dosage: DISEASE OF THE STOMACH
     Dates: start: 20191011
  7. MANNITOL. [Concomitant]
     Active Substance: MANNITOL
     Dates: start: 20191111, end: 20191117
  8. OMEPRAZOLE SODIUM [Concomitant]
     Active Substance: OMEPRAZOLE SODIUM
     Dates: start: 20191111, end: 20191117
  9. GINKGO [Concomitant]
     Active Substance: GINKGO
     Dates: start: 20191111, end: 20191111
  10. DEXAMETHASONE SODIUM PHOSPHATE. [Concomitant]
     Active Substance: DEXAMETHASONE SODIUM PHOSPHATE
     Route: 042
     Dates: start: 20191111, end: 20191111
  11. PRILOSEC [Concomitant]
     Active Substance: OMEPRAZOLE MAGNESIUM
     Dates: start: 20191111, end: 20191117
  12. POLYENE PHOSPHATIDYLCHOLINE [Concomitant]
     Active Substance: PHOSPHOLIPID
     Indication: HEPATITIS B
     Dates: start: 20191009, end: 20191011
  13. MAGNESIUM ISOGLYCYRRHIZINATE [Concomitant]
     Active Substance: MAGNESIUM ISOGLYCYRRHIZINATE
     Dates: start: 20191107, end: 20191109
  14. MORPHINE HYDROCHLORIDE [Concomitant]
     Active Substance: MORPHINE HYDROCHLORIDE
     Indication: PAIN
     Dates: start: 20191108, end: 20191108
  15. REDUCED GLUTATHIONE SODIUM [Concomitant]
     Active Substance: GLUTATHIONE
     Dosage: PROTECT LIVER TREATMENT
     Dates: start: 20191008, end: 20191011
  16. SODIUM AESCINATE [Concomitant]
     Active Substance: SODIUM ESCINATE
     Indication: PERIPHERAL VENOUS DISEASE
     Dosage: VENOUS REFLUX DISORDER
     Dates: start: 20191008, end: 20191011
  17. ASPIRIN. [Concomitant]
     Active Substance: ASPIRIN
     Dosage: REDUCES THE RISK OF A HEART ATTACK
     Dates: start: 20191009, end: 20191011
  18. TROPISETRON [Concomitant]
     Active Substance: TROPISETRON
     Dosage: PREVENT NAUSEA AND VOMITING
     Dates: start: 20191108, end: 20191108
  19. URSODEOXYCHOLIC ACID [Concomitant]
     Active Substance: URSODIOL
     Indication: HEPATIC CIRRHOSIS
     Dates: start: 20190805
  20. CALCIUM GLUCONATE. [Concomitant]
     Active Substance: CALCIUM GLUCONATE
     Dates: start: 20191111, end: 20191111
  21. FUROSEMIDE. [Concomitant]
     Active Substance: FUROSEMIDE
     Dates: start: 20191008, end: 20191008
  22. MAGNESIUM ISOGLYCYRRHIZINATE [Concomitant]
     Active Substance: MAGNESIUM ISOGLYCYRRHIZINATE
     Indication: HEPATITIS
     Dates: start: 20191008, end: 20191011
  23. INSULIN [Concomitant]
     Active Substance: INSULIN NOS
     Dates: start: 20191107, end: 20191109
  24. POTASSIUM CHLORIDE. [Concomitant]
     Active Substance: POTASSIUM CHLORIDE
     Dates: start: 20191114, end: 20191117
  25. FUROSEMIDE. [Concomitant]
     Active Substance: FUROSEMIDE
     Dates: start: 20191010, end: 20191010
  26. SILYMARIN [Concomitant]
     Active Substance: DIETARY SUPPLEMENT\HERBALS\MILK THISTLE
     Indication: HEPATIC CIRRHOSIS
     Dates: start: 20190419
  27. PANTOPRAZOLE SODIUM. [Concomitant]
     Active Substance: PANTOPRAZOLE SODIUM
     Indication: GASTROINTESTINAL DISORDER
     Dates: start: 20191108, end: 20191108
  28. TENOFOVIR DISOPROXIL FUMARATE. [Concomitant]
     Active Substance: TENOFOVIR DISOPROXIL FUMARATE
     Indication: HEPATITIS
     Dates: start: 20191011
  29. REDUCED GLUTATHIONE SODIUM [Concomitant]
     Active Substance: GLUTATHIONE
     Dates: start: 20191111, end: 20191117
  30. AMBROXOL HYDROCHLORIDE [Concomitant]
     Active Substance: AMBROXOL HYDROCHLORIDE
     Dates: start: 20191111, end: 20191117
  31. INDOMETACIN [Concomitant]
     Active Substance: INDOMETHACIN
     Dates: start: 20191111, end: 20191111
  32. BEVACIZUMAB. [Suspect]
     Active Substance: BEVACIZUMAB
     Indication: HEPATOCELLULAR CARCINOMA
     Dosage: ON DAY 1 OF EACH 21 DAY CYCLE?DATE OF MOST RECENT DOSE OF BEVACIZUMAB (1080 MG) PRIOR TO EVENT ONSET
     Route: 042
     Dates: start: 20190308
  33. TROPISETRON [Concomitant]
     Active Substance: TROPISETRON
     Dosage: PREVENT NAUSEA AND VOMITING
     Dates: start: 20191008, end: 20191008
  34. CALCIUM GLUCONATE. [Concomitant]
     Active Substance: CALCIUM GLUCONATE
     Dates: start: 20191009, end: 20191009
  35. BICYCLOL [Concomitant]
     Active Substance: BICYCLOL
     Indication: HEPATITIS B
     Dosage: PIECE
     Dates: start: 201803
  36. ADEMETIONINE 1,4?BUTANEDISULFONATE [Concomitant]
     Indication: HEPATIC CIRRHOSIS
     Dates: start: 20190805, end: 20190812
  37. REDUCED GLUTATHIONE SODIUM [Concomitant]
     Active Substance: GLUTATHIONE
     Dosage: PROTECT LIVER TREATMENT
     Dates: start: 20191107, end: 20191109
  38. EDARAVONE [Concomitant]
     Active Substance: EDARAVONE
     Dates: start: 20191114, end: 20191115
  39. EDARAVONE [Concomitant]
     Active Substance: EDARAVONE
     Dates: start: 20191114, end: 20191114
  40. FUROSEMIDE. [Concomitant]
     Active Substance: FUROSEMIDE
     Indication: HEPATIC CIRRHOSIS
     Dates: start: 20191108, end: 20191108
  41. INSULIN [Concomitant]
     Active Substance: INSULIN NOS
     Indication: DIABETES MELLITUS
     Dates: start: 20191008, end: 20191011
  42. PREDNISONE ACETATE [Concomitant]
     Active Substance: PREDNISONE ACETATE
     Route: 048
     Dates: start: 20191008, end: 20191130
  43. PREDNISONE ACETATE [Concomitant]
     Active Substance: PREDNISONE ACETATE
     Route: 048
     Dates: start: 20190806, end: 20190809
  44. CODEINE PHOSPHATE [Concomitant]
     Active Substance: CODEINE PHOSPHATE
     Dates: start: 20191115, end: 20191115

REACTIONS (3)
  - Cerebral infarction [Recovered/Resolved]
  - Aspartate aminotransferase increased [Recovered/Resolved]
  - Blood bilirubin increased [Recovered/Resolved]

NARRATIVE: CASE EVENT DATE: 20190801
